FAERS Safety Report 20525259 (Version 1)
Quarter: 2022Q1

REPORT INFORMATION
  Report Type: Spontaneous
  Country: JP (occurrence: JP)
  Receive Date: 20220228
  Receipt Date: 20220228
  Transmission Date: 20220423
  Serious: Yes (Hospitalization)
  Sender: FDA-Public Use
  Company Number: JP-GLAXOSMITHKLINE-JP2022JPN034954

PATIENT
  Sex: Female

DRUGS (1)
  1. NUCALA [Suspect]
     Active Substance: MEPOLIZUMAB
     Indication: Asthma
     Dosage: UNK

REACTIONS (6)
  - Anaemia [Unknown]
  - Transfusion [Unknown]
  - Diarrhoea [Unknown]
  - Dyspnoea [Unknown]
  - Palpitations [Unknown]
  - Inappropriate schedule of product administration [Unknown]
